FAERS Safety Report 5141927-5 (Version None)
Quarter: 2006Q4

REPORT INFORMATION
  Report Type: 
  Country: None (occurrence: None)
  Receive Date: 20061102
  Receipt Date: 20050725
  Transmission Date: 20070319
  Serious: Yes (Life-Threatening, Hospitalization, Other)
  Sender: FDA-Public Use
  Company Number: PHHO2005CA11726

PATIENT
  Age: 48 Year
  Sex: Male

DRUGS (2)
  1. CLOZARIL [Suspect]
     Indication: SCHIZOPHRENIA
     Dosage: UNK, UNK
     Route: 048
     Dates: start: 20050610, end: 20050723
  2. CLOZARIL [Suspect]
     Route: 048
     Dates: start: 19950101

REACTIONS (3)
  - AGRANULOCYTOSIS [None]
  - CLOSTRIDIUM DIFFICILE COLITIS [None]
  - HEPATIC ENZYME INCREASED [None]
